FAERS Safety Report 10065231 (Version 3)
Quarter: 2014Q2

REPORT INFORMATION
  Report Type: Report from Study
  Country: JP (occurrence: JP)
  Receive Date: 20140408
  Receipt Date: 20140612
  Transmission Date: 20141212
  Serious: Yes (Hospitalization)
  Sender: FDA-Public Use
  Company Number: JP-PFIZER INC-2014095913

PATIENT
  Age: 64 Year
  Sex: Female
  Weight: 33 kg

DRUGS (10)
  1. CELECOX [Suspect]
     Indication: RHEUMATOID ARTHRITIS
     Dosage: 400 MG, DAILY
     Route: 048
  2. CELECOX [Suspect]
     Indication: RHEUMATOID ARTHRITIS
     Dosage: 400 MG, DAILY
  3. CIMZIA [Suspect]
     Dosage: UNK
  4. CIMZIA [Suspect]
     Indication: RHEUMATOID ARTHRITIS
     Dosage: 400MG ONCE EVERY 2 WEEKS
     Dates: start: 20130731, end: 20130828
  5. CIMZIA [Suspect]
     Dosage: 200MG ONCE EVERY 2 WEEKS
     Dates: start: 20130911, end: 20131204
  6. TRACLEER [Suspect]
     Indication: ANGIOPATHY
     Dosage: 62.5 MG, DAILY
     Route: 048
     Dates: start: 20110712, end: 20131205
  7. TRACLEER [Suspect]
     Indication: VASCULAR INSUFFICIENCY
  8. HUMIRA [Concomitant]
     Indication: RHEUMATOID ARTHRITIS
     Dosage: 40 MG, DAILY
     Dates: start: 20100326, end: 20110826
  9. IMURAN [Concomitant]
     Indication: RHEUMATOID ARTHRITIS
     Dosage: UNK
  10. RINDERON [Concomitant]
     Indication: RHEUMATOID ARTHRITIS
     Dosage: UNK
     Route: 048

REACTIONS (1)
  - Benign gastric neoplasm [Recovering/Resolving]
